FAERS Safety Report 9712683 (Version 1)
Quarter: 2013Q4

REPORT INFORMATION
  Report Type: Spontaneous
  Country: US (occurrence: US)
  Receive Date: 20131126
  Receipt Date: 20131126
  Transmission Date: 20140711
  Serious: No
  Sender: FDA-Public Use
  Company Number: US-BRISTOL-MYERS SQUIBB COMPANY-18897074

PATIENT
  Age: 33 Year
  Sex: Female

DRUGS (3)
  1. BYDUREON [Suspect]
     Indication: POLYCYSTIC OVARIES
  2. METFORMIN [Concomitant]
     Indication: POLYCYSTIC OVARIES
  3. SPIRONOLACTONE [Concomitant]
     Indication: POLYCYSTIC OVARIES

REACTIONS (3)
  - Injection site haemorrhage [Unknown]
  - Injection site extravasation [Unknown]
  - Injection site pain [Unknown]
